FAERS Safety Report 11745329 (Version 2)
Quarter: 2016Q1

REPORT INFORMATION
  Report Type: Report from Study
  Country: GB (occurrence: GB)
  Receive Date: 20151117
  Receipt Date: 20160113
  Transmission Date: 20160525
  Serious: Yes (Death, Hospitalization)
  Sender: FDA-Public Use
  Company Number: GB-ROCHE-1660325

PATIENT
  Sex: Female

DRUGS (4)
  1. LEFLUNOMIDE. [Concomitant]
     Active Substance: LEFLUNOMIDE
  2. HYDROXYCHLOROQUINE [Concomitant]
     Active Substance: HYDROXYCHLOROQUINE
  3. METHOTREXATE [Concomitant]
     Active Substance: METHOTREXATE
  4. TOCILIZUMAB [Suspect]
     Active Substance: TOCILIZUMAB
     Indication: RHEUMATOID ARTHRITIS
     Dosage: ON 15/JUN/2014, LAST DOSE PRIOR TO THE EVENT WAS RECEIVED
     Route: 065
     Dates: start: 20130415

REACTIONS (2)
  - Depressed level of consciousness [Fatal]
  - Myocardial infarction [Fatal]
